FAERS Safety Report 9113490 (Version 1)
Quarter: 2013Q1

REPORT INFORMATION
  Report Type: Spontaneous
  Country: US (occurrence: US)
  Receive Date: 20130129
  Receipt Date: 20130129
  Transmission Date: 20140127
  Serious: No
  Sender: FDA-Public Use
  Company Number: US-009507513-1301USA013339

PATIENT
  Sex: Female

DRUGS (1)
  1. CLARITIN-D 12 HOUR [Suspect]
     Indication: PRODUCT USED FOR UNKNOWN INDICATION
     Dosage: UNKNOWN

REACTIONS (3)
  - Pollakiuria [Unknown]
  - Poor quality sleep [Unknown]
  - Underdose [Unknown]
